FAERS Safety Report 18298174 (Version 1)
Quarter: 2020Q3

REPORT INFORMATION
  Report Type: Spontaneous
  Country: US (occurrence: US)
  Receive Date: 20200922
  Receipt Date: 20200922
  Transmission Date: 20201103
  Serious: No
  Sender: FDA-Public Use
  Company Number: US-ELI_LILLY_AND_COMPANY-US202009007306

PATIENT
  Age: 58 Year
  Sex: Female

DRUGS (2)
  1. BAQSIMI [Suspect]
     Active Substance: GLUCAGON
     Indication: BLOOD GLUCOSE DECREASED
     Dosage: UNK UNK, UNKNOWN
     Route: 045
  2. BAQSIMI [Suspect]
     Active Substance: GLUCAGON
     Indication: BLOOD GLUCOSE DECREASED
     Dosage: UNK UNK, UNKNOWN
     Route: 045

REACTIONS (4)
  - Rhinalgia [Recovered/Resolved]
  - Nasal discomfort [Recovered/Resolved]
  - Nasal discomfort [Recovering/Resolving]
  - Rhinalgia [Recovering/Resolving]

NARRATIVE: CASE EVENT DATE: 20200902
